FAERS Safety Report 9127742 (Version 1)
Quarter: 2013Q1

REPORT INFORMATION
  Report Type: Spontaneous
  Country: US (occurrence: US)
  Receive Date: 20130228
  Receipt Date: 20130228
  Transmission Date: 20140127
  Serious: No
  Sender: FDA-Public Use
  Company Number: US-PFIZER INC-2013067929

PATIENT
  Sex: Female

DRUGS (2)
  1. TYGACIL [Suspect]
     Indication: PNEUMONIA
     Dosage: UNK
     Dates: start: 20130220
  2. TYGACIL [Suspect]
     Indication: ABSCESS

REACTIONS (2)
  - Drug ineffective [Unknown]
  - Swollen tongue [Unknown]
